FAERS Safety Report 4462547-1 (Version None)
Quarter: 2004Q3

REPORT INFORMATION
  Report Type: 
  Country: None (occurrence: None)
  Receive Date: 20040924
  Receipt Date: 20040908
  Transmission Date: 20050211
  Serious: Yes (Hospitalization)
  Sender: FDA-Public Use
  Company Number: DSA_24974_2004

PATIENT
  Age: 65 Year
  Sex: Male

DRUGS (4)
  1. ENALAPRIL MALEATE [Suspect]
     Indication: HYPERTENSION
     Dosage: 5 MG Q DAY PO
     Route: 048
     Dates: start: 19970311, end: 20011122
  2. METFORMIN [Suspect]
     Indication: DIABETES MELLITUS
     Dosage: 850 MG TID PO
     Route: 048
     Dates: start: 20000404, end: 20011122
  3. CO-CODAMOL [Concomitant]
  4. GINGKO BILOBA [Concomitant]

REACTIONS (3)
  - ANAEMIA HAEMOLYTIC AUTOIMMUNE [None]
  - HAPTOGLOBIN DECREASED [None]
  - WHITE BLOOD CELL COUNT INCREASED [None]
